FAERS Safety Report 8423230-0 (Version None)
Quarter: 2012Q2

REPORT INFORMATION
  Report Type: 
  Country: None (occurrence: None)
  Receive Date: 20120608
  Receipt Date: 20120530
  Transmission Date: 20120825
  Serious: Yes (Hospitalization, Other)
  Sender: FDA-Public Use
  Company Number: US-JNJFOC-20120213844

PATIENT
  Sex: Female
  Weight: 72.58 kg

DRUGS (15)
  1. REMICADE [Suspect]
     Route: 042
     Dates: start: 20110126
  2. REMICADE [Suspect]
     Route: 042
     Dates: start: 20111005
  3. APRISO [Concomitant]
     Indication: CROHN'S DISEASE
  4. REMICADE [Suspect]
     Route: 042
     Dates: start: 20101215
  5. REMICADE [Suspect]
     Indication: CROHN'S DISEASE
     Route: 042
     Dates: start: 20110419
  6. REMICADE [Suspect]
     Route: 042
     Dates: start: 20110603
  7. FOLIC ACID [Concomitant]
     Indication: IRON DEFICIENCY ANAEMIA
     Route: 065
  8. HYDROCHLOROTHIAZIDE [Concomitant]
     Indication: HYPERTENSION
     Route: 065
  9. REMICADE [Suspect]
     Route: 042
     Dates: start: 20110309
  10. REMICADE [Suspect]
     Route: 042
     Dates: start: 20111116
  11. REMICADE [Suspect]
     Route: 042
     Dates: start: 20110712
  12. REMICADE [Suspect]
     Route: 042
     Dates: start: 20110824
  13. REMICADE [Suspect]
     Route: 042
     Dates: end: 20120208
  14. OMEPRAZOLE [Concomitant]
     Indication: GASTROOESOPHAGEAL REFLUX DISEASE
     Route: 065
  15. SYNTHROID [Concomitant]
     Route: 065

REACTIONS (3)
  - APPENDICITIS PERFORATED [None]
  - ADENOCARCINOMA [None]
  - INFECTION [None]
